FAERS Safety Report 10615675 (Version 1)
Quarter: 2014Q4

REPORT INFORMATION
  Report Type: Spontaneous
  Country: IT (occurrence: None)
  Receive Date: 20141125
  Receipt Date: 20141125
  Transmission Date: 20150529
  Serious: Yes (Hospitalization, Other)
  Sender: FDA-Public Use
  Company Number: CL-593-2014

PATIENT
  Age: 39 Year
  Sex: Male

DRUGS (2)
  1. AMOXICILLIN/CLAVULANIC ACID [Suspect]
     Active Substance: AMOXICILLIN\CLAVULANIC ACID
     Indication: EAR INFECTION
     Dosage: UNK UNK ORAL
     Route: 048
     Dates: start: 20140828, end: 20140905
  2. FLUCONAZOLE UNK [Suspect]
     Active Substance: FLUCONAZOLE
     Indication: CANDIDA INFECTION
     Dosage: UNK UNK UNK
     Dates: start: 20140830, end: 20140906

REACTIONS (2)
  - Lichenoid keratosis [None]
  - Dermatitis bullous [None]
